FAERS Safety Report 20799460 (Version 1)
Quarter: 2022Q2

REPORT INFORMATION
  Report Type: Spontaneous
  Country: US (occurrence: US)
  Receive Date: 20220508
  Receipt Date: 20220508
  Transmission Date: 20220720
  Serious: No
  Sender: FDA-Public Use
  Company Number: US-Blueprint Medicines Corporation-70

PATIENT
  Sex: Male

DRUGS (1)
  1. AYVAKIT [Suspect]
     Active Substance: AVAPRITINIB
     Indication: Gastrointestinal stromal tumour
     Dosage: 200MG DAILY
     Route: 048
     Dates: start: 20201010

REACTIONS (7)
  - Intentional dose omission [Unknown]
  - Chemotherapy side effect prophylaxis [Unknown]
  - Sensitive skin [Unknown]
  - Temperature intolerance [Unknown]
  - Hyperbilirubinaemia [Unknown]
  - Lacrimation increased [Unknown]
  - Abdominal discomfort [Unknown]
